FAERS Safety Report 7145033-X (Version None)
Quarter: 2010Q4

REPORT INFORMATION
  Report Type: 
  Country: None (occurrence: None)
  Receive Date: 20101208
  Receipt Date: 20101129
  Transmission Date: 20110411
  Serious: Yes (Other)
  Sender: FDA-Public Use
  Company Number: US-US-EMD SERONO, INC.-7015595

PATIENT
  Sex: Female
  Weight: 72 kg

DRUGS (4)
  1. REBIF [Suspect]
     Indication: MULTIPLE SCLEROSIS
     Route: 058
     Dates: start: 20100325, end: 20100822
  2. BACLOFEN [Concomitant]
     Indication: MUSCLE SPASMS
  3. ALEVE (CAPLET) [Concomitant]
     Indication: PREMEDICATION
  4. VITAMIN A AND C MULTIVITAMIN [Concomitant]
     Indication: PROPHYLAXIS

REACTIONS (2)
  - ANAPHYLACTIC REACTION [None]
  - BLADDER PROLAPSE [None]
